FAERS Safety Report 5700690-7 (Version None)
Quarter: 2008Q2

REPORT INFORMATION
  Report Type: 
  Country: None (occurrence: None)
  Receive Date: 20080409
  Receipt Date: 20080409
  Transmission Date: 20081010
  Serious: Yes (Death)
  Sender: FDA-Public Use
  Company Number: None

PATIENT
  Age: 25 Year
  Sex: Female
  Weight: 82.1011 kg

DRUGS (3)
  1. VENLAFAXINE HCL [Suspect]
     Indication: ANXIETY
     Dosage: 187.5 DAILY PO
     Route: 048
     Dates: start: 20071112, end: 20080212
  2. VENLAFAXINE HCL [Suspect]
     Indication: DEPRESSION
     Dosage: 187.5 DAILY PO
     Route: 048
     Dates: start: 20071112, end: 20080212
  3. VENLAFAXINE HCL [Suspect]
     Indication: PANIC ATTACK
     Dosage: 187.5 DAILY PO
     Route: 048
     Dates: start: 20071112, end: 20080212

REACTIONS (3)
  - COMPLETED SUICIDE [None]
  - GUN SHOT WOUND [None]
  - HEAD INJURY [None]
